FAERS Safety Report 8062373-0 (Version None)
Quarter: 2012Q1

REPORT INFORMATION
  Report Type: 
  Country: None (occurrence: None)
  Receive Date: 20120113
  Receipt Date: 20120104
  Transmission Date: 20120608
  Serious: Yes (Other)
  Sender: FDA-Public Use
  Company Number: 2012MA000222

PATIENT
  Age: 31 Year
  Sex: Male

DRUGS (11)
  1. LANSOPRAZOLE [Concomitant]
  2. IPRATROPIUM BROMIDE [Concomitant]
  3. ASCORBIC ACID [Concomitant]
  4. FERROUS SUL ELX [Suspect]
     Indication: ANAEMIA
     Dates: start: 20080601, end: 20080701
  5. AMISULPRIDE [Concomitant]
  6. VALPROIC ACID [Concomitant]
  7. CLOZARIL [Suspect]
     Indication: SCHIZOPHRENIA
     Dosage: PO
     Route: 048
     Dates: start: 20040101
  8. BROMIDE [Concomitant]
  9. BECLOMETHASONE DIPROPIONATE [Concomitant]
  10. FYBOGEL [Concomitant]
  11. LACTULOSE [Concomitant]

REACTIONS (4)
  - EPIDIDYMAL DISORDER [None]
  - C-REACTIVE PROTEIN INCREASED [None]
  - EPIDIDYMITIS [None]
  - GROIN PAIN [None]
